FAERS Safety Report 4862954-9 (Version None)
Quarter: 2005Q4

REPORT INFORMATION
  Report Type: 
  Country: None (occurrence: None)
  Receive Date: 20051219
  Receipt Date: 20051206
  Transmission Date: 20060501
  Serious: Yes (Other)
  Sender: FDA-Public Use
  Company Number: 2005JP002158

PATIENT
  Age: 10 Month
  Sex: Female
  Weight: 6.6 kg

DRUGS (2)
  1. PROGRAF [Suspect]
     Indication: LIVER TRANSPLANT
     Dosage: IV NOS
     Route: 042
  2. METHYLPREDNISOLONE [Concomitant]

REACTIONS (7)
  - ANASTOMOTIC COMPLICATION [None]
  - BILE DUCT STENOSIS [None]
  - CHOLANGITIS [None]
  - HEPATIC ARTERY OCCLUSION [None]
  - HEPATIC ARTERY THROMBOSIS [None]
  - MEDICATION ERROR [None]
  - OVERDOSE [None]
